FAERS Safety Report 8341432-9 (Version None)
Quarter: 2012Q2

REPORT INFORMATION
  Report Type: 
  Country: None (occurrence: None)
  Receive Date: 20120507
  Receipt Date: 20120426
  Transmission Date: 20120825
  Serious: Yes (Disabling)
  Sender: FDA-Public Use
  Company Number: AU-MERCK-1203USA02312

PATIENT
  Age: 61 Year
  Sex: Female

DRUGS (7)
  1. EUTROXSIG [Concomitant]
     Indication: THYROID DISORDER
     Route: 065
  2. CYMBALTA [Concomitant]
     Indication: DEPRESSION
     Route: 065
  3. PHENERGAN HCL [Concomitant]
     Indication: HYPERSENSITIVITY
     Route: 065
  4. DIAZEPAM [Concomitant]
     Indication: SLEEP DISORDER
     Dosage: 1 M
     Route: 065
  5. SINEMET [Suspect]
     Indication: PARKINSON'S DISEASE
     Dosage: NEW TABLET
     Route: 048
     Dates: start: 20120313, end: 20120314
  6. TEMAZEPAM [Concomitant]
     Indication: SLEEP DISORDER
     Dosage: 1 M
     Route: 065
  7. RABEPRAZOLE SODIUM [Concomitant]
     Indication: GASTROOESOPHAGEAL REFLUX DISEASE
     Route: 065

REACTIONS (5)
  - DYSPNOEA [None]
  - MUSCLE TWITCHING [None]
  - PALPITATIONS [None]
  - ANXIETY [None]
  - DRUG INEFFECTIVE [None]
